FAERS Safety Report 6156076-7 (Version None)
Quarter: 2009Q2

REPORT INFORMATION
  Report Type: 
  Country: None (occurrence: None)
  Receive Date: 20090415
  Receipt Date: 20090403
  Transmission Date: 20091009
  Serious: Yes (Other)
  Sender: FDA-Public Use
  Company Number: JP-PFIZER INC-2009167670

PATIENT

DRUGS (2)
  1. ZYVOX [Suspect]
     Indication: SPONDYLITIS
     Dosage: UNK
     Route: 048
     Dates: start: 20090105, end: 20090107
  2. ZYVOX [Suspect]
     Dosage: UNK
     Route: 042
     Dates: start: 20090127, end: 20090204

REACTIONS (1)
  - HEARING IMPAIRED [None]
